FAERS Safety Report 14739315 (Version 2)
Quarter: 2018Q4

REPORT INFORMATION
  Report Type: Report from Study
  Country: JP (occurrence: JP)
  Receive Date: 20180410
  Receipt Date: 20181218
  Transmission Date: 20190204
  Serious: Yes (Death, Life-Threatening, Hospitalization, Other)
  Sender: FDA-Public Use
  Company Number: JP-009507513-1804JPN000148J

PATIENT
  Age: 54 Year
  Sex: Male
  Weight: 73 kg

DRUGS (5)
  1. RANMARK [Concomitant]
     Active Substance: DENOSUMAB
     Indication: TRANSITIONAL CELL CARCINOMA
     Dosage: 120 MILLIGRAM, QD
     Route: 058
     Dates: start: 20180306, end: 20180306
  2. DENOTAS [Concomitant]
     Active Substance: CALCIUM CARBONATE\CHOLECALCIFEROL\MAGNESIUM CARBONATE
     Indication: PROPHYLAXIS
     Dosage: 1 DOSAGE FORM, TID
     Route: 048
     Dates: end: 20180327
  3. KEYTRUDA [Suspect]
     Active Substance: PEMBROLIZUMAB
     Indication: TRANSITIONAL CELL CARCINOMA
     Dosage: 200 MG, Q3W
     Route: 041
     Dates: start: 20180227, end: 20180227
  4. PANTOSIN [Concomitant]
     Active Substance: PANTETHINE
     Indication: TRANSITIONAL CELL CARCINOMA
     Dosage: 120 MILLIGRAM, TID
     Route: 048
     Dates: end: 20180306
  5. CALONAL [Concomitant]
     Active Substance: ACETAMINOPHEN
     Indication: TRANSITIONAL CELL CARCINOMA
     Dosage: 500 MILLIGRAM, TID
     Route: 048
     Dates: end: 20180327

REACTIONS (3)
  - Tumour rupture [Not Recovered/Not Resolved]
  - Cerebral haemorrhage [Fatal]
  - Nausea [Recovered/Resolved]

NARRATIVE: CASE EVENT DATE: 2018
